FAERS Safety Report 5501297-7 (Version None)
Quarter: 2007Q4

REPORT INFORMATION
  Report Type: 
  Country: None (occurrence: None)
  Receive Date: 20071026
  Receipt Date: 20071015
  Transmission Date: 20080405
  Serious: Yes (Hospitalization, Other)
  Sender: FDA-Public Use
  Company Number: 2006BI011680

PATIENT
  Age: 48 Year
  Sex: Female

DRUGS (9)
  1. AVONEX [Suspect]
     Indication: MULTIPLE SCLEROSIS
     Dosage: 30 UG; QW; IM
     Route: 030
     Dates: start: 20000301, end: 20031001
  2. AVONEX [Suspect]
     Indication: MULTIPLE SCLEROSIS
     Dosage: 30 UG; QW; IM
     Route: 030
     Dates: start: 20031001
  3. AMANTADINE HCL [Concomitant]
  4. COZAAR [Concomitant]
  5. ANTIVERT [Concomitant]
  6. ALAVERT [Concomitant]
  7. LASIX [Concomitant]
  8. CYMBALTA [Concomitant]
  9. THYROID MED (NOS) [Concomitant]

REACTIONS (8)
  - BILE DUCT CANCER [None]
  - BLOOD ALBUMIN DECREASED [None]
  - DEHYDRATION [None]
  - DIZZINESS [None]
  - HEPATIC NEOPLASM MALIGNANT [None]
  - HYPOTENSION [None]
  - SEPSIS [None]
  - URINARY TRACT INFECTION [None]
